FAERS Safety Report 9140202 (Version 2)
Quarter: 2013Q2

REPORT INFORMATION
  Report Type: Report from Study
  Country: US (occurrence: US)
  Receive Date: 20130305
  Receipt Date: 20130506
  Transmission Date: 20140414
  Serious: Yes (Hospitalization)
  Sender: FDA-Public Use
  Company Number: PHEH2013US005230

PATIENT
  Age: 69 Year
  Sex: Female

DRUGS (3)
  1. TASIGNA [Suspect]
     Indication: CHRONIC MYELOID LEUKAEMIA
     Dosage: 300 MG, BID
     Route: 048
  2. TASIGNA [Suspect]
  3. ANTICOAGULANTS [Concomitant]

REACTIONS (6)
  - Peritoneal haemorrhage [Unknown]
  - Limb injury [Unknown]
  - Fall [Unknown]
  - Pneumonia [Unknown]
  - Influenza [Unknown]
  - Atrial fibrillation [Unknown]
